FAERS Safety Report 13316182 (Version 2)
Quarter: 2017Q2

REPORT INFORMATION
  Report Type: Spontaneous
  Country: GB (occurrence: GB)
  Receive Date: 20170308
  Receipt Date: 20170609
  Transmission Date: 20170830
  Serious: Yes (Death, Hospitalization, Other)
  Sender: FDA-Public Use
  Company Number: GB-INTERNATIONAL MEDICATION SYSTEMS, LIMITED-1064013

PATIENT
  Age: 63 Year
  Sex: Male

DRUGS (7)
  1. AMISULPRIDE [Concomitant]
     Active Substance: AMISULPRIDE
     Route: 048
  2. ZAPONEX [Suspect]
     Active Substance: CLOZAPINE
     Route: 048
     Dates: start: 20090626
  3. INSULIN [Concomitant]
     Active Substance: INSULIN NOS
     Route: 058
  4. SERTRALINE [Concomitant]
     Active Substance: SERTRALINE HYDROCHLORIDE
     Route: 048
  5. ADRENALINE [Suspect]
     Active Substance: EPINEPHRINE
  6. NOREPINEPHRINE. [Suspect]
     Active Substance: NOREPINEPHRINE
  7. VASOPRESSIN. [Suspect]
     Active Substance: VASOPRESSIN

REACTIONS (8)
  - Hypertension [Unknown]
  - Myocardial ischaemia [Fatal]
  - Colitis ischaemic [Unknown]
  - Death [Fatal]
  - Peripheral vascular disorder [Fatal]
  - Cardiac failure [Not Recovered/Not Resolved]
  - Sepsis [Not Recovered/Not Resolved]
  - Myocardial infarction [Not Recovered/Not Resolved]

NARRATIVE: CASE EVENT DATE: 20170202
